FAERS Safety Report 8534933-1 (Version None)
Quarter: 2012Q3

REPORT INFORMATION
  Report Type: 
  Country: None (occurrence: None)
  Receive Date: 20120724
  Receipt Date: 20060710
  Transmission Date: 20120928
  Serious: Yes (Other)
  Sender: FDA-Public Use
  Company Number: US-ROCHE-1091173

PATIENT
  Sex: Male

DRUGS (2)
  1. XOLAIR [Suspect]
  2. XOLAIR [Suspect]
     Indication: ASTHMA
     Dates: start: 20060706

REACTIONS (1)
  - MALAISE [None]
